FAERS Safety Report 6368610-2 (Version None)
Quarter: 2009Q3

REPORT INFORMATION
  Report Type: 
  Country: None (occurrence: None)
  Receive Date: 20090917
  Receipt Date: 20090917
  Transmission Date: 20100115
  Serious: Yes (Other)
  Sender: FDA-Public Use
  Company Number: None

PATIENT
  Age: 19 Year
  Sex: Female
  Weight: 56.6996 kg

DRUGS (1)
  1. BUPROPION HCL [Suspect]
     Indication: SMOKING CESSATION THERAPY
     Dosage: ONE BY MOUTH TWICE PO TWICE A DAY
     Route: 048
     Dates: start: 20090827, end: 20090828

REACTIONS (7)
  - ASTHENIA [None]
  - CONSTIPATION [None]
  - DIZZINESS [None]
  - HEADACHE [None]
  - MEMORY IMPAIRMENT [None]
  - OROPHARYNGEAL PAIN [None]
  - SYNCOPE [None]
